FAERS Safety Report 7953286-0 (Version None)
Quarter: 2011Q4

REPORT INFORMATION
  Report Type: 
  Country: None (occurrence: None)
  Receive Date: 20111202
  Receipt Date: 20111118
  Transmission Date: 20120403
  Serious: Yes (Hospitalization, Other)
  Sender: FDA-Public Use
  Company Number: GB-MYLANLABS-2011S1024065

PATIENT
  Age: 50 Year
  Sex: Male

DRUGS (25)
  1. IMIPRAMINE [Concomitant]
     Indication: ANXIETY
     Dates: end: 20081101
  2. IMIPRAMINE [Concomitant]
     Indication: DEPRESSION
     Dates: end: 20081101
  3. CITALOPRAM [Suspect]
     Indication: ANXIETY
     Dates: start: 20070101, end: 20070801
  4. CITALOPRAM [Suspect]
     Dates: start: 20070801, end: 20080401
  5. EFFEXOR [Suspect]
     Indication: ANXIETY
     Dates: start: 20080509, end: 20080528
  6. EFFEXOR [Suspect]
     Dates: start: 20080529, end: 20080605
  7. EFFEXOR XR [Suspect]
     Dates: start: 20081115, end: 20081121
  8. DIAZEPAM [Concomitant]
     Indication: DEPRESSION
     Dates: start: 20080421, end: 20081101
  9. EFFEXOR [Suspect]
     Dates: start: 20080429, end: 20080508
  10. EFFEXOR XR [Suspect]
     Indication: ANXIETY
     Dates: start: 20080606, end: 20081106
  11. EFFEXOR XR [Suspect]
     Dates: start: 20081107, end: 20081114
  12. CITALOPRAM [Suspect]
     Indication: DEPRESSION
     Dates: start: 20070101, end: 20070801
  13. EFFEXOR XR [Suspect]
     Dates: start: 20081115, end: 20081121
  14. FLUOXETINE [Concomitant]
     Indication: ANXIETY
     Dates: end: 20081101
  15. CITALOPRAM [Suspect]
     Dates: start: 20070801, end: 20080401
  16. EFFEXOR [Suspect]
     Dates: start: 20080421, end: 20080428
  17. EFFEXOR [Suspect]
     Indication: DEPRESSION
     Dates: start: 20080509, end: 20080528
  18. EFFEXOR [Suspect]
     Dates: start: 20080421, end: 20080428
  19. EFFEXOR XR [Suspect]
     Indication: DEPRESSION
     Dates: start: 20080606, end: 20081106
  20. EFFEXOR XR [Suspect]
     Dates: start: 20081107, end: 20081114
  21. DIAZEPAM [Concomitant]
     Indication: ANXIETY
     Dates: start: 20080421, end: 20081101
  22. EFFEXOR [Suspect]
     Dates: start: 20080429, end: 20080508
  23. EFFEXOR [Suspect]
     Dates: start: 20080529, end: 20080605
  24. FLUOXETINE [Concomitant]
     Indication: DEPRESSION
     Dates: end: 20081101
  25. OLANZAPINE [Concomitant]
     Indication: DEPRESSION
     Dates: end: 20081101

REACTIONS (16)
  - COORDINATION ABNORMAL [None]
  - MUSCLE SPASMS [None]
  - SALIVARY HYPERSECRETION [None]
  - WEIGHT DECREASED [None]
  - CLUMSINESS [None]
  - CEREBELLAR SYNDROME [None]
  - BALANCE DISORDER [None]
  - DYSARTHRIA [None]
  - SPEECH DISORDER [None]
  - GAIT DISTURBANCE [None]
  - APATHY [None]
  - EYE MOVEMENT DISORDER [None]
  - APHASIA [None]
  - FALL [None]
  - DYSPHAGIA [None]
  - ASTHENIA [None]
